FAERS Safety Report 12722091 (Version 1)
Quarter: 2016Q3

REPORT INFORMATION
  Report Type: Spontaneous
  Country: US (occurrence: US)
  Receive Date: 20160907
  Receipt Date: 20160907
  Transmission Date: 20161109
  Serious: Yes (Other)
  Sender: FDA-Public Use
  Company Number: US-MYLANLABS-2016M1037590

PATIENT

DRUGS (1)
  1. ASCORBIC ACID. [Suspect]
     Active Substance: ASCORBIC ACID
     Indication: THERMAL BURN
     Dosage: 66 MG/KG/HR
     Route: 050

REACTIONS (2)
  - Acute kidney injury [Unknown]
  - Nephropathy [Unknown]
